FAERS Safety Report 6827807-5 (Version None)
Quarter: 2010Q3

REPORT INFORMATION
  Report Type: 
  Country: None (occurrence: None)
  Receive Date: 20100709
  Receipt Date: 20070129
  Transmission Date: 20110219
  Serious: Yes (Other)
  Sender: FDA-Public Use
  Company Number: US-PFIZER INC-2007008079

PATIENT
  Sex: Female
  Weight: 53.1 kg

DRUGS (4)
  1. CHANTIX [Suspect]
     Indication: SMOKING CESSATION THERAPY
     Route: 065
     Dates: start: 20070125
  2. LITHIUM CARBONATE [Concomitant]
  3. PRILOSEC [Concomitant]
  4. XANAX [Concomitant]

REACTIONS (3)
  - DEPRESSION [None]
  - DIARRHOEA [None]
  - NAUSEA [None]
